FAERS Safety Report 7680360-9 (Version None)
Quarter: 2011Q3

REPORT INFORMATION
  Report Type: 
  Country: None (occurrence: None)
  Receive Date: 20110812
  Receipt Date: 20110804
  Transmission Date: 20111222
  Serious: Yes (Hospitalization)
  Sender: FDA-Public Use
  Company Number: FR-GLAXOSMITHKLINE-B0737106A

PATIENT
  Age: 36 Year
  Sex: Male

DRUGS (2)
  1. REQUIP [Suspect]
     Indication: PARKINSON'S DISEASE
     Dosage: 8MG TWICE PER DAY
     Route: 048
     Dates: start: 20090101
  2. MODOPAR [Concomitant]
     Route: 065
     Dates: start: 20060101

REACTIONS (5)
  - LIBIDO INCREASED [None]
  - IMPULSE-CONTROL DISORDER [None]
  - SEXUAL ABUSE [None]
  - HYPERSEXUALITY [None]
  - HALLUCINATION, VISUAL [None]
